FAERS Safety Report 16764914 (Version 6)
Quarter: 2020Q2

REPORT INFORMATION
  Report Type: Spontaneous
  Country: PT (occurrence: PT)
  Receive Date: 20190903
  Receipt Date: 20200617
  Transmission Date: 20200713
  Serious: Yes (Hospitalization, Other)
  Sender: FDA-Public Use
  Company Number: PT-AUROBINDO-AUR-APL-2019-057595

PATIENT
  Age: 88 Year
  Sex: Female

DRUGS (2)
  1. AMIODARONE TABLETS [Suspect]
     Active Substance: AMIODARONE
     Indication: ATRIAL FIBRILLATION
  2. AMIODARONE TABLETS [Suspect]
     Active Substance: AMIODARONE
     Indication: CARDIAC FAILURE
     Dosage: UNK
     Route: 065

REACTIONS (13)
  - Hepatic function abnormal [Recovered/Resolved]
  - Dyspnoea [Recovered/Resolved]
  - Hepatotoxicity [Recovered/Resolved]
  - Pneumonia [Recovered/Resolved]
  - Respiratory tract infection [Recovered/Resolved]
  - Hypoxia [Recovered/Resolved]
  - Respiratory failure [Recovered/Resolved]
  - Pulmonary toxicity [Recovered/Resolved]
  - Cholestatic liver injury [Recovered/Resolved]
  - Pyrexia [Recovered/Resolved]
  - Hepatic failure [Recovered/Resolved]
  - Cholestasis [Recovered/Resolved]
  - Hepatocellular injury [Recovered/Resolved]
